FAERS Safety Report 24334956 (Version 2)
Quarter: 2024Q4

REPORT INFORMATION
  Report Type: Spontaneous
  Country: US (occurrence: US)
  Receive Date: 20240918
  Receipt Date: 20241010
  Transmission Date: 20250114
  Serious: Yes (Other)
  Sender: Alora Pharma
  Company Number: US-ACELLA PHARMACEUTICALS, LLC-2024ALO00367

PATIENT
  Sex: Female

DRUGS (6)
  1. NP THYROID [Suspect]
     Active Substance: LEVOTHYROXINE\LIOTHYRONINE
     Dosage: 60 MG
     Route: 048
  2. NP THYROID [Suspect]
     Active Substance: LEVOTHYROXINE\LIOTHYRONINE
     Dosage: 60 MG, 3 DAYS A WEEK
     Route: 048
  3. NP THYROID [Suspect]
     Active Substance: LEVOTHYROXINE\LIOTHYRONINE
     Dosage: 60 MG, 3 DAYS A WEEK
     Route: 048
     Dates: start: 202407, end: 2024
  4. NP THYROID [Suspect]
     Active Substance: LEVOTHYROXINE\LIOTHYRONINE
     Dosage: 90 MG, 4 DAYS A WEEK
     Route: 048
     Dates: start: 20240405, end: 2024
  5. NP THYROID [Suspect]
     Active Substance: LEVOTHYROXINE\LIOTHYRONINE
     Dosage: 90 MG, 4 DAYS A WEEK
     Route: 048
     Dates: start: 202407, end: 2024
  6. NP THYROID [Suspect]
     Active Substance: LEVOTHYROXINE\LIOTHYRONINE
     Dosage: 120 MG
     Route: 048
     Dates: start: 20240509, end: 2024

REACTIONS (3)
  - Blood thyroid stimulating hormone increased [Unknown]
  - Feeling abnormal [Unknown]
  - Treatment noncompliance [Recovered/Resolved]
